FAERS Safety Report 17501714 (Version 2)
Quarter: 2020Q2

REPORT INFORMATION
  Report Type: Spontaneous
  Country: JP (occurrence: JP)
  Receive Date: 20200305
  Receipt Date: 20200410
  Transmission Date: 20200713
  Serious: Yes (Hospitalization, Other)
  Sender: FDA-Public Use
  Company Number: JP-PFIZER INC-2020096508

PATIENT
  Age: 74 Year
  Sex: Male
  Weight: 49 kg

DRUGS (13)
  1. OSELTAMIVIR [Concomitant]
     Active Substance: OSELTAMIVIR
     Dosage: 75 MG, 2X/DAY
     Route: 048
     Dates: start: 20190207, end: 20190212
  2. PIOGLITAZONE. [Concomitant]
     Active Substance: PIOGLITAZONE
     Dosage: 15 MG, 1X/DAY
     Route: 048
  3. NAFTOPIDIL [Concomitant]
     Active Substance: NAFTOPIDIL
     Dosage: 75 MG, UNK
  4. MENESIT [Concomitant]
     Active Substance: CARBIDOPA\LEVODOPA
     Dosage: 200 UNK, UNK
     Route: 048
     Dates: start: 20181004
  5. MAOTO [Concomitant]
     Active Substance: HERBALS
     Dosage: 2.5 MG, 3X/DAY
     Route: 048
     Dates: start: 20190206, end: 20190208
  6. DEBERZA [Suspect]
     Active Substance: TOFOGLIFLOZIN
     Dosage: 20 MG, 1X/DAY
     Route: 048
     Dates: start: 20181004, end: 20190208
  7. ENSURE [Concomitant]
     Active Substance: AMINO ACIDS\DEXTROSE\ELECTROLYTES NOS\SOYBEAN OIL\VITAMINS
     Dosage: UNK, 3X/DAY
     Route: 048
     Dates: start: 20190124, end: 20190208
  8. DAIPHEN [Concomitant]
     Active Substance: SULFAMETHOXAZOLE\TRIMETHOPRIM
     Dosage: 2 DF, 2X/DAY
     Route: 048
     Dates: start: 20190206, end: 20190208
  9. DONEPEZIL. [Concomitant]
     Active Substance: DONEPEZIL
     Dosage: 5 MG, 1X/DAY
     Route: 048
     Dates: end: 20190208
  10. TOVIAZ [Suspect]
     Active Substance: FESOTERODINE FUMARATE
     Indication: HYPERTONIC BLADDER
     Dosage: 4 MG, 1X/DAY
     Route: 048
     Dates: start: 201810, end: 20190208
  11. VALSARTAN. [Concomitant]
     Active Substance: VALSARTAN
     Dosage: 80 MG, 1X/DAY
     Route: 048
     Dates: start: 20181004, end: 20190208
  12. NAFTOPIDIL [Concomitant]
     Active Substance: NAFTOPIDIL
     Dosage: 25 MG, 1X/DAY
     Route: 048
     Dates: end: 20190226
  13. GLUCONSAN K [Concomitant]
     Active Substance: POTASSIUM GLUCONATE
     Dosage: 8 MEQ, 3X/DAY
     Route: 048
     Dates: start: 20190124

REACTIONS (4)
  - Influenza [Recovered/Resolved]
  - Urinary retention [Not Recovered/Not Resolved]
  - Urinary tract infection [Recovering/Resolving]
  - Dehydration [Recovering/Resolving]

NARRATIVE: CASE EVENT DATE: 201902
